FAERS Safety Report 21768532 (Version 3)
Quarter: 2023Q2

REPORT INFORMATION
  Report Type: Spontaneous
  Country: ES (occurrence: ES)
  Receive Date: 20221222
  Receipt Date: 20230630
  Transmission Date: 20230721
  Serious: Yes (Hospitalization, Other)
  Sender: FDA-Public Use
  Company Number: ES-GW PHARMA-2022-ES-038158

PATIENT
  Age: 20 Year

DRUGS (4)
  1. CANNABIDIOL [Suspect]
     Active Substance: CANNABIDIOL
     Indication: Lennox-Gastaut syndrome
     Dosage: 160 MILLIGRAM, BID
     Dates: start: 20221107
  2. CANNABIDIOL [Suspect]
     Active Substance: CANNABIDIOL
     Indication: Petit mal epilepsy
  3. CANNABIDIOL [Suspect]
     Active Substance: CANNABIDIOL
     Indication: Tonic convulsion
  4. ETHOSUXIMIDE [Suspect]
     Active Substance: ETHOSUXIMIDE
     Indication: Product used for unknown indication
     Dosage: UNK
     Dates: start: 20221031

REACTIONS (4)
  - Urinary retention [Unknown]
  - Petit mal epilepsy [Unknown]
  - Tonic convulsion [Unknown]
  - Constipation [Unknown]

NARRATIVE: CASE EVENT DATE: 20221130
